FAERS Safety Report 13429822 (Version 1)
Quarter: 2017Q2

REPORT INFORMATION
  Report Type: Spontaneous
  Country: US (occurrence: US)
  Receive Date: 20170412
  Receipt Date: 20170412
  Transmission Date: 20170830
  Serious: Yes (Hospitalization)
  Sender: FDA-Public Use
  Company Number: US-B.I. PHARMACEUTICALS,INC./RIDGEFIELD-2017-BI-020244

PATIENT
  Age: 80 Year
  Sex: Male

DRUGS (17)
  1. TRADJENTA [Suspect]
     Active Substance: LINAGLIPTIN
     Indication: DIABETES MELLITUS
     Dosage: 1 TABLET 1 TIME DAILY;  FORM STRENGTH: 5 MG; FORMULATION: TABLET? ADMINISTRATION CORRECT? YES ?ACTIO
     Route: 048
  2. REPAGLINIDE. [Concomitant]
     Active Substance: REPAGLINIDE
     Indication: DIABETES MELLITUS
     Dosage: 1 TABLET BID;  FORM STRENGTH: 1 MG; FORMULATION: TABLET
     Route: 048
     Dates: start: 2016
  3. CELLCEPT [Concomitant]
     Active Substance: MYCOPHENOLATE MOFETIL\MYCOPHENOLATE MOFETIL HYDROCHLORIDE
     Indication: RENAL TRANSPLANT
     Dosage: 1 TABLET BID;  FORM STRENGTH: 750 MG; FORMULATION: TABLET
     Route: 048
  4. TAMSULOSIN [Concomitant]
     Active Substance: TAMSULOSIN
     Indication: PROSTATE CANCER
     Dosage: 1 TABLET BID;  FORM STRENGTH: 0.4 MG; FORMULATION: TABLET
     Route: 048
  5. LEVEMIR [Concomitant]
     Active Substance: INSULIN DETEMIR
     Indication: DIABETES MELLITUS
     Dosage: Q HS;  FORM STRENGTH: SLIDING SCALE;
     Route: 058
  6. AMLODIPINE [Concomitant]
     Active Substance: AMLODIPINE BESYLATE
     Indication: HYPERTENSION
     Dosage: 1 TABLET 1 TIME DAILY;  FORM STRENGTH: 2.5 MG; FORMULATION: TABLET
     Route: 048
  7. FERROUS OXIDE. [Concomitant]
     Active Substance: FERROUS OXIDE
     Indication: PRODUCT USED FOR UNKNOWN INDICATION
     Dosage: 1 TABLET BID;  FORM STRENGTH: 150 MG; FORMULATION: TABLET
     Route: 048
  8. VITAMIN B12 [Concomitant]
     Active Substance: CYANOCOBALAMIN
     Indication: PRODUCT USED FOR UNKNOWN INDICATION
     Dosage: 1 TABLET 1 TIME DAILY;  FORM STRENGTH: 1000 MCG; FORMULATION: TABLET
     Route: 048
  9. RENAL MULTIVITAMIN [Concomitant]
     Indication: PRODUCT USED FOR UNKNOWN INDICATION
     Dosage: 1 TABLET 1 TIME DAILY;  FORMULATION: TABLET;
     Route: 048
  10. ACIPHEX [Concomitant]
     Active Substance: RABEPRAZOLE SODIUM
     Indication: GASTROOESOPHAGEAL REFLUX DISEASE
     Dosage: 1 TABLET BID;  FORM STRENGTH: 20 MG; FORMULATION: TABLET
     Route: 048
  11. DONEPEZIL. [Concomitant]
     Active Substance: DONEPEZIL
     Indication: DEMENTIA
     Dosage: 1 TABLET 1 TIME DAILY;  FORM STRENGTH: 10 MG; FORMULATION: TABLET
     Route: 048
  12. MAGNESIUM OXIDE. [Concomitant]
     Active Substance: MAGNESIUM OXIDE
     Indication: PRODUCT USED FOR UNKNOWN INDICATION
     Dosage: 1 TABLET BID;  FORM STRENGTH: 440 MG; FORMULATION: TABLET
     Route: 048
  13. SENSIPAR [Concomitant]
     Active Substance: CINACALCET HYDROCHLORIDE
     Indication: RENAL TRANSPLANT
     Dosage: 1 TABLET 1 TIME DAILY;  FORM STRENGTH: 90 MG; FORMULATION: TABLET
     Route: 048
  14. MEMANTINE. [Concomitant]
     Active Substance: MEMANTINE
     Indication: DEMENTIA
     Dosage: 1 TABLET BID;  FORM STRENGTH: 10 MG; FORMULATION: TABLET
     Route: 048
  15. ECOTRIN [Concomitant]
     Active Substance: ASPIRIN
     Indication: PRODUCT USED FOR UNKNOWN INDICATION
     Dosage: 1 TABLET 1 TIME DAILY;  FORM STRENGTH: 325 MG; FORMULATION: TABLET
     Route: 048
  16. METOPROLOL. [Concomitant]
     Active Substance: METOPROLOL
     Indication: PRODUCT USED FOR UNKNOWN INDICATION
     Dosage: 1 TABLET BID;  FORM STRENGTH: 12.5 MG; FORMULATION: TABLET
     Route: 048
  17. NEORAL [Concomitant]
     Active Substance: CYCLOSPORINE
     Indication: RENAL TRANSPLANT
     Dosage: 1 TABLET BID;  FORM STRENGTH: 75 MG; FORMULATION: TABLET
     Route: 048

REACTIONS (9)
  - Pyrexia [Recovered/Resolved]
  - Urinary incontinence [Not Recovered/Not Resolved]
  - Blood glucose decreased [Unknown]
  - Diarrhoea [Recovered/Resolved]
  - Urinary tract infection [Recovered/Resolved]
  - Pneumonia [Recovered/Resolved]
  - Diarrhoea [Recovered/Resolved]
  - Dysphonia [Recovered/Resolved]
  - Bronchitis [Not Recovered/Not Resolved]

NARRATIVE: CASE EVENT DATE: 201512
